FAERS Safety Report 6620022-X (Version None)
Quarter: 2010Q1

REPORT INFORMATION
  Report Type: 
  Country: None (occurrence: None)
  Receive Date: 20100309
  Receipt Date: 20100224
  Transmission Date: 20100710
  Serious: Yes (Other)
  Sender: FDA-Public Use
  Company Number: JP-ROCHE-581749

PATIENT
  Sex: Male
  Weight: 60 kg

DRUGS (6)
  1. TOCILIZUMAB [Suspect]
     Indication: RHEUMATOID ARTHRITIS
     Route: 041
     Dates: start: 20080612, end: 20080612
  2. RIMATIL [Concomitant]
     Route: 048
  3. METOLATE [Concomitant]
     Route: 048
  4. PREDONINE [Concomitant]
     Route: 048
  5. PREDNISOLONE [Concomitant]
     Dosage: FORM: ORAL FORMULATION (NOT OTHER WISE SPECIFIED).
     Route: 048
  6. LOXONIN [Concomitant]
     Dosage: FORM: ORAL FORMULATION (NOT OTHER WISE SPECIFIED)
     Route: 048

REACTIONS (2)
  - SKIN ULCER [None]
  - VASCULITIS [None]
